FAERS Safety Report 16309049 (Version 2)
Quarter: 2019Q2

REPORT INFORMATION
  Report Type: Spontaneous
  Country: US (occurrence: US)
  Receive Date: 20190514
  Receipt Date: 20190606
  Transmission Date: 20190711
  Serious: No
  Sender: FDA-Public Use
  Company Number: US-PFIZER INC-2019200117

PATIENT
  Age: 57 Year
  Sex: Female
  Weight: 67.13 kg

DRUGS (7)
  1. DULOXETINE HCL [Concomitant]
     Active Substance: DULOXETINE HYDROCHLORIDE
     Dosage: 60 MG, 2X/DAY(60 MG IN THE MORNING AND 60 MG IN THE EVENING)
  2. ATORVASTATIN [Concomitant]
     Active Substance: ATORVASTATIN
     Indication: BLOOD CHOLESTEROL ABNORMAL
     Dosage: 40 MG, 1X/DAY(ONCE AT NIGHT)
  3. TYLENOL [Concomitant]
     Active Substance: ACETAMINOPHEN
     Indication: PAIN
     Dosage: UNK
  4. LYRICA [Suspect]
     Active Substance: PREGABALIN
     Indication: NEURALGIA
     Dosage: 200 MG, 2X/DAY(200 MG IN THE MORNING AND 200 MG IN THE EVENING)
     Route: 048
  5. LYRICA [Suspect]
     Active Substance: PREGABALIN
     Indication: BURNING SENSATION
  6. VERAPAMIL [Concomitant]
     Active Substance: VERAPAMIL HYDROCHLORIDE
     Indication: BLOOD PRESSURE ABNORMAL
     Dosage: 120 MG, 2X/DAY(ONE IN THE MORNING AND ONE IN THE EVENING )
  7. ESOMEPRAZOLE. [Concomitant]
     Active Substance: ESOMEPRAZOLE MAGNESIUM
     Indication: GASTRITIS
     Dosage: 40 MG, 2X/DAY (ONE IN THE MORNING AND ONE IN THE EVENING)

REACTIONS (5)
  - Hypoaesthesia [Unknown]
  - Insomnia [Unknown]
  - Disease recurrence [Unknown]
  - Hyperhidrosis [Unknown]
  - Dizziness [Unknown]
